FAERS Safety Report 13262674 (Version 7)
Quarter: 2019Q4

REPORT INFORMATION
  Report Type: Report from Study
  Country: JP (occurrence: JP)
  Receive Date: 20170223
  Receipt Date: 20191230
  Transmission Date: 20200122
  Serious: Yes (Hospitalization)
  Sender: FDA-Public Use
  Company Number: JP-ACTELION-A-CH2017-149924

PATIENT
  Age: 48 Year
  Sex: Female

DRUGS (33)
  1. TRACLEER [Suspect]
     Active Substance: BOSENTAN
     Dosage: 62.5 MG, OD
     Route: 048
     Dates: start: 20160825, end: 20160915
  2. TAKECAB [Concomitant]
     Active Substance: VONOPRAZAN FUMURATE
  3. BIO-THREE [Concomitant]
     Active Substance: HERBALS
  4. PREDNISOLON [Suspect]
     Active Substance: PREDNISOLONE
     Dosage: 4 MG, QD
     Route: 048
     Dates: start: 20170804, end: 20180515
  5. PREDONINE [Suspect]
     Active Substance: PREDNISOLONE
     Dosage: 35 MG, QD
     Route: 048
     Dates: start: 20161112, end: 20161210
  6. FUROSEMIDE. [Suspect]
     Active Substance: FUROSEMIDE
     Indication: PRODUCT USED FOR UNKNOWN INDICATION
     Dosage: UNK
     Route: 042
     Dates: end: 20161121
  7. GEBEN [Concomitant]
     Active Substance: SILVER SULFADIAZINE
     Indication: SKIN INFECTION
     Dosage: UNK
  8. CEFAZOLIN [Concomitant]
     Active Substance: CEFAZOLIN
  9. PREDNISOLON [Suspect]
     Active Substance: PREDNISOLONE
     Dosage: 2 MG, QD
     Route: 048
     Dates: start: 20170331, end: 20170511
  10. PREDONINE [Suspect]
     Active Substance: PREDNISOLONE
     Dosage: 5 MG, QD
     Route: 048
     Dates: start: 20170804, end: 20180815
  11. PROCYLIN [Concomitant]
     Active Substance: BERAPROST SODIUM
     Dosage: UNK
     Dates: start: 20161218
  12. FERROMIA [Concomitant]
     Active Substance: SODIUM FERROUS CITRATE
  13. GASMOTIN [Concomitant]
     Active Substance: MOSAPRIDE CITRATE
  14. BAKTAR [Concomitant]
     Active Substance: SULFAMETHOXAZOLE\TRIMETHOPRIM
     Indication: C-REACTIVE PROTEIN INCREASED
     Dosage: UNK
     Dates: start: 20181129
  15. DIART [Concomitant]
     Active Substance: AZOSEMIDE
  16. PREDONINE [Suspect]
     Active Substance: PREDNISOLONE
     Dosage: 20 MG, QD
     Route: 048
     Dates: start: 20170108, end: 20170223
  17. GEBEN [Concomitant]
     Active Substance: SILVER SULFADIAZINE
     Indication: SKIN ULCER
     Dosage: UNK
     Dates: start: 20190418
  18. KLARICID [Concomitant]
     Active Substance: CLARITHROMYCIN
     Indication: SKIN INFECTION
  19. PREDNISOLON [Suspect]
     Active Substance: PREDNISOLONE
     Indication: SYSTEMIC LUPUS ERYTHEMATOSUS
     Dosage: 4 MG, QD
     Route: 048
     Dates: start: 20170310, end: 20170330
  20. PREDONINE [Suspect]
     Active Substance: PREDNISOLONE
     Indication: SYSTEMIC LUPUS ERYTHEMATOSUS
     Dosage: 10 MG, QD
     Route: 048
     Dates: start: 20161019, end: 20161109
  21. PREDONINE [Suspect]
     Active Substance: PREDNISOLONE
     Dosage: 15 MG, QD
     Route: 048
     Dates: start: 20170224, end: 20170309
  22. PREDONINE [Suspect]
     Active Substance: PREDNISOLONE
     Dosage: 10 MG, QD
     Route: 048
     Dates: start: 20170310, end: 20170803
  23. PALUX [Concomitant]
     Active Substance: ALPROSTADIL
     Dosage: UNK
     Dates: start: 20170330
  24. HIRUDOID [Concomitant]
     Active Substance: GLYCOSAMINOGLYCANS
  25. TRACLEER [Suspect]
     Active Substance: BOSENTAN
     Indication: SCLERODERMA ASSOCIATED DIGITAL ULCER
     Dosage: 62.5 MG, OD
     Route: 048
     Dates: start: 20161020, end: 20161104
  26. SPIRONOLACTON [Suspect]
     Active Substance: SPIRONOLACTONE
     Indication: PRODUCT USED FOR UNKNOWN INDICATION
     Dosage: 50 MG, QD
     Route: 048
  27. PREDONINE [Suspect]
     Active Substance: PREDNISOLONE
     Dosage: 30 MG, QD
     Route: 048
     Dates: start: 20161211, end: 20161224
  28. BONALON [Concomitant]
     Active Substance: ALENDRONATE SODIUM
  29. CELLCEPT [Suspect]
     Active Substance: MYCOPHENOLATE MOFETIL\MYCOPHENOLATE MOFETIL HYDROCHLORIDE
     Indication: SYSTEMIC LUPUS ERYTHEMATOSUS
     Dosage: UNK
     Route: 065
     Dates: start: 20170309, end: 20170622
  30. TRACLEER [Suspect]
     Active Substance: BOSENTAN
     Dosage: 62.5 MG, OD
     Route: 048
     Dates: start: 20161118
  31. PREDONINE [Suspect]
     Active Substance: PREDNISOLONE
     Dosage: 25 MG, QD
     Route: 048
     Dates: start: 20161225, end: 20170107
  32. IMURAN [Suspect]
     Active Substance: AZATHIOPRINE
     Indication: SYSTEMIC LUPUS ERYTHEMATOSUS
     Dosage: UNK
     Route: 065
     Dates: start: 20170119, end: 20170223
  33. ANPLAG [Concomitant]
     Active Substance: SARPOGRELATE

REACTIONS (37)
  - Supraventricular tachycardia [Recovered/Resolved]
  - Respiratory disorder [Recovered/Resolved with Sequelae]
  - Pleural effusion [Recovered/Resolved with Sequelae]
  - Malaise [Recovering/Resolving]
  - Hepatic function abnormal [Recovered/Resolved]
  - Oral candidiasis [Recovered/Resolved]
  - Systemic lupus erythematosus [Recovered/Resolved]
  - Hypokalaemia [Recovered/Resolved]
  - Erythema [Recovered/Resolved]
  - C-reactive protein increased [Not Recovered/Not Resolved]
  - Cardiomegaly [Recovered/Resolved with Sequelae]
  - Cough [Recovered/Resolved with Sequelae]
  - Diarrhoea [Recovered/Resolved]
  - Dehydration [Recovered/Resolved]
  - Anaemia [Recovering/Resolving]
  - Pyrexia [Recovering/Resolving]
  - Oedema peripheral [Recovering/Resolving]
  - Skin infection [Not Recovered/Not Resolved]
  - Arrhythmia supraventricular [Recovered/Resolved]
  - Pulmonary oedema [Recovering/Resolving]
  - Dyspnoea exertional [Recovered/Resolved]
  - Condition aggravated [Recovering/Resolving]
  - Joint contracture [Recovering/Resolving]
  - Decubitus ulcer [Recovering/Resolving]
  - Cellulitis [Recovered/Resolved]
  - Cardiac failure congestive [Recovered/Resolved with Sequelae]
  - Pleurisy [Recovering/Resolving]
  - Skin ulcer [Recovering/Resolving]
  - Renal impairment [Recovering/Resolving]
  - Nasopharyngitis [Recovered/Resolved]
  - Nausea [Recovered/Resolved]
  - Pulmonary hypertension [Recovered/Resolved]
  - Tenderness [Recovered/Resolved]
  - Infection [Recovering/Resolving]
  - Neoplasm skin [Recovered/Resolved]
  - Oesophageal candidiasis [Recovered/Resolved]
  - Rib fracture [Recovering/Resolving]

NARRATIVE: CASE EVENT DATE: 20160912
